FAERS Safety Report 22281766 (Version 2)
Quarter: 2023Q2

REPORT INFORMATION
  Report Type: Spontaneous
  Country: US (occurrence: US)
  Receive Date: 20230504
  Receipt Date: 20230509
  Transmission Date: 20230721
  Serious: No
  Sender: FDA-Public Use
  Company Number: US-SA-SAC20230501001008

PATIENT
  Age: 68 Year
  Sex: Female

DRUGS (1)
  1. DUPIXENT [Suspect]
     Active Substance: DUPILUMAB
     Indication: Dermatitis atopic
     Dosage: DOSE OR AMOUNT: 300MG/2ML FREQUENCY: INJ 300MG 1P SQ Q 2 WS S15
     Route: 058

REACTIONS (1)
  - Drug hypersensitivity [Unknown]
